FAERS Safety Report 16653772 (Version 2)
Quarter: 2019Q4

REPORT INFORMATION
  Report Type: Spontaneous
  Country: DE (occurrence: DE)
  Receive Date: 20190731
  Receipt Date: 20191209
  Transmission Date: 20200122
  Serious: Yes (Hospitalization, Other)
  Sender: FDA-Public Use
  Company Number: DE-MYLANLABS-2019M1071408

PATIENT
  Age: 35 Year
  Sex: Female

DRUGS (1)
  1. BROMOCRIPTINE [Suspect]
     Active Substance: BROMOCRIPTINE
     Indication: BREAST FEEDING
     Dosage: 1.25 MILLIGRAM 6 HOURS
     Route: 065
     Dates: start: 20180305

REACTIONS (2)
  - Epilepsy [Unknown]
  - Generalised tonic-clonic seizure [Recovered/Resolved]

NARRATIVE: CASE EVENT DATE: 20180306
